FAERS Safety Report 18843769 (Version 1)
Quarter: 2021Q1

REPORT INFORMATION
  Report Type: Spontaneous
  Country: GB (occurrence: GB)
  Receive Date: 20210203
  Receipt Date: 20210203
  Transmission Date: 20210419
  Serious: Yes (Hospitalization)
  Sender: FDA-Public Use
  Company Number: GB-EXELIXIS-CABO-20032558

PATIENT
  Age: 69 Year

DRUGS (9)
  1. LANSOPRAZOLE. [Concomitant]
     Active Substance: LANSOPRAZOLE
  2. ONDANSETRON [Concomitant]
     Active Substance: ONDANSETRON
  3. BENZYDAMINE [Concomitant]
     Active Substance: BENZYDAMINE
  4. LISINOPRIL. [Concomitant]
     Active Substance: LISINOPRIL
  5. LOPERAMIDE [Concomitant]
     Active Substance: LOPERAMIDE
  6. COCODAMOL [Concomitant]
     Active Substance: ACETAMINOPHEN\CODEINE PHOSPHATE
  7. LATANOPROST. [Concomitant]
     Active Substance: LATANOPROST
     Dosage: 50 UG
  8. DIFFLAM [BENZYDAMINE] [Concomitant]
     Active Substance: BENZYDAMINE
  9. CABOMETYX [Suspect]
     Active Substance: CABOZANTINIB S-MALATE
     Indication: PRODUCT USED FOR UNKNOWN INDICATION
     Dosage: 40 MG, QD
     Route: 048

REACTIONS (1)
  - Hyponatraemia [Recovering/Resolving]
